FAERS Safety Report 11574881 (Version 1)
Quarter: 2015Q3

REPORT INFORMATION
  Report Type: Spontaneous
  Country: US (occurrence: US)
  Receive Date: 20150916
  Receipt Date: 20150916
  Transmission Date: 20151125
  Serious: No
  Sender: FDA-Public Use
  Company Number: US-ELI_LILLY_AND_COMPANY-US200911003876

PATIENT
  Age: 57 Year
  Sex: Female

DRUGS (1)
  1. FORTEO [Suspect]
     Active Substance: TERIPARATIDE
     Indication: OSTEOPOROSIS
     Dosage: 20 UG, DAILY (1/D)
     Dates: start: 20091108

REACTIONS (9)
  - Premenstrual syndrome [Unknown]
  - Breast tenderness [Unknown]
  - Constipation [Unknown]
  - Dysuria [Unknown]
  - Irritability [Unknown]
  - Nausea [Unknown]
  - Dizziness [Unknown]
  - Depressed mood [Unknown]
  - Breast swelling [Unknown]

NARRATIVE: CASE EVENT DATE: 20091108
